FAERS Safety Report 7811882-5 (Version None)
Quarter: 2011Q4

REPORT INFORMATION
  Report Type: 
  Country: None (occurrence: None)
  Receive Date: 20111013
  Receipt Date: 20111003
  Transmission Date: 20120403
  Serious: Yes (Hospitalization, Other)
  Sender: FDA-Public Use
  Company Number: PHFR2011IE04745

PATIENT
  Sex: Female

DRUGS (6)
  1. LEVOTHYROXINE SODIUM [Concomitant]
     Indication: HYPOTHYROIDISM
     Dosage: 50 MG/ DAY
     Route: 048
  2. VALPROIC ACID [Concomitant]
     Indication: BIPOLAR DISORDER
     Dosage: 1200 MG/ DAY
     Route: 048
     Dates: start: 20020101
  3. LITHIUM CARBONATE [Concomitant]
     Indication: BIPOLAR DISORDER
     Dosage: 400 MG/ DAY
     Route: 048
     Dates: start: 20020101
  4. ANXICALM [Concomitant]
     Dosage: 15 MG/ DAY
     Route: 048
  5. DEPO-PROVERA [Concomitant]
     Indication: CONTRACEPTION
     Route: 030
  6. CLOZARIL [Suspect]
     Indication: BIPOLAR DISORDER
     Dosage: 625 MG/ DAY
     Route: 048
     Dates: start: 20020331

REACTIONS (3)
  - PNEUMONIA ASPIRATION [None]
  - DIABETES INSIPIDUS [None]
  - RESPIRATORY TRACT INFECTION [None]
